FAERS Safety Report 6483266-6 (Version None)
Quarter: 2009Q4

REPORT INFORMATION
  Report Type: 
  Country: None (occurrence: None)
  Receive Date: 20091209
  Receipt Date: 20091208
  Transmission Date: 20100525
  Serious: Yes (Hospitalization, Other)
  Sender: FDA-Public Use
  Company Number: TR-ROXANE LABORATORIES, INC.-2009-RO-01233RO

PATIENT
  Age: 16 Year
  Sex: Male

DRUGS (6)
  1. OXCARBAZEPINE [Suspect]
     Indication: EPILEPSY
  2. WARFARIN SODIUM [Suspect]
     Dosage: 10 MG
  3. WARFARIN SODIUM [Suspect]
     Dosage: 15 MG
  4. WARFARIN SODIUM [Suspect]
     Dosage: 20 MG
  5. CLOPIDOGREL [Concomitant]
     Indication: INTERNATIONAL NORMALISED RATIO DECREASED
     Dosage: 75 MG
  6. ASPIRIN [Concomitant]
     Indication: INTERNATIONAL NORMALISED RATIO DECREASED
     Dosage: 300 MG

REACTIONS (2)
  - DRUG RESISTANCE [None]
  - INTERNATIONAL NORMALISED RATIO DECREASED [None]
